FAERS Safety Report 5360448-8 (Version None)
Quarter: 2007Q2

REPORT INFORMATION
  Report Type: 
  Country: None (occurrence: None)
  Receive Date: 20070618
  Receipt Date: 20070612
  Transmission Date: 20071010
  Serious: Yes (Life-Threatening, Hospitalization, Other)
  Sender: FDA-Public Use
  Company Number: JP-ASTRAZENECA-2006AP01216

PATIENT
  Age: 27795 Day
  Sex: Male
  Weight: 60.2 kg

DRUGS (28)
  1. CRESTOR [Suspect]
     Indication: HYPERCHOLESTEROLAEMIA
     Route: 048
     Dates: start: 20051221, end: 20060302
  2. CRESTOR [Suspect]
     Route: 048
     Dates: start: 20060328, end: 20060703
  3. CRESTOR [Suspect]
     Route: 048
     Dates: start: 20060704, end: 20061203
  4. NU-LOTAN [Concomitant]
     Indication: HYPERTENSION
     Route: 048
     Dates: end: 20060304
  5. ALLOPURINOL [Concomitant]
     Indication: HYPERURICAEMIA
     Route: 048
  6. OMEPRAL [Concomitant]
     Indication: GASTRITIS
     Route: 048
     Dates: end: 20060309
  7. EUGLUCON [Concomitant]
     Indication: DIABETES MELLITUS
     Route: 048
     Dates: end: 20061203
  8. CARDENALIN [Concomitant]
     Indication: HYPERTENSION
     Route: 048
     Dates: end: 20060304
  9. AMLODIN [Concomitant]
     Indication: HYPERTENSION
     Route: 048
     Dates: end: 20060304
  10. TICLOPIDINE HCL [Concomitant]
     Indication: THROMBOSIS PROPHYLAXIS
     Route: 048
  11. PRORENAL [Concomitant]
     Indication: ARTERIOSCLEROSIS OBLITERANS
     Route: 048
  12. SIGMART [Concomitant]
     Indication: ANGINA PECTORIS
     Route: 048
  13. ASPIRIN [Concomitant]
     Indication: THROMBOSIS PROPHYLAXIS
     Route: 048
  14. PURSENNID [Concomitant]
     Indication: CONSTIPATION
     Route: 048
     Dates: end: 20060304
  15. MEVALOTIN [Concomitant]
     Dosage: PAST DRUG HISTORY
  16. NITOROL [Concomitant]
     Dosage: PAST DRUG HISTORY
  17. NITRODERM [Concomitant]
     Indication: ANGINA PECTORIS
     Dates: start: 20060304, end: 20060308
  18. ALBUMINAR [Concomitant]
     Indication: AORTIC BYPASS
     Route: 041
     Dates: start: 20060303, end: 20060304
  19. PREDOPA [Concomitant]
     Indication: AORTIC BYPASS
     Route: 041
     Dates: start: 20060303, end: 20060308
  20. LIPLE [Concomitant]
     Indication: ARTERIOSCLEROSIS OBLITERANS
     Route: 013
     Dates: start: 20060303, end: 20060303
  21. ALPROSTADIL [Concomitant]
     Indication: ARTERIOSCLEROSIS OBLITERANS
     Route: 042
     Dates: start: 20060304, end: 20060304
  22. METILON [Concomitant]
     Indication: ANTIPYRESIS
     Route: 058
     Dates: start: 20060304, end: 20060304
  23. LASIX [Concomitant]
     Indication: BRAIN OEDEMA
     Route: 048
  24. MUCODYNE [Concomitant]
     Indication: SPUTUM RETENTION
     Route: 048
     Dates: start: 20060305, end: 20060310
  25. BISOLVON [Concomitant]
     Indication: SPUTUM RETENTION
     Route: 048
     Dates: start: 20060305, end: 20060310
  26. HANP [Concomitant]
     Indication: CARDIOGENIC SHOCK
     Route: 042
     Dates: start: 20060303, end: 20060305
  27. PERDIPINE [Concomitant]
     Indication: HYPERTENSION
     Route: 042
     Dates: start: 20060303, end: 20060305
  28. CEFAMEZIN ALPHA [Concomitant]
     Indication: INFECTION PROPHYLAXIS
     Dates: start: 20060303, end: 20060305

REACTIONS (15)
  - ALANINE AMINOTRANSFERASE INCREASED [None]
  - ASPARTATE AMINOTRANSFERASE INCREASED [None]
  - BLOOD ALKALINE PHOSPHATASE INCREASED [None]
  - BLOOD BILIRUBIN INCREASED [None]
  - C-REACTIVE PROTEIN INCREASED [None]
  - CARDIAC FAILURE [None]
  - CELLULITIS [None]
  - CEREBRAL INFARCTION [None]
  - CORONARY ARTERY RESTENOSIS [None]
  - DYSARTHRIA [None]
  - DYSPNOEA [None]
  - GAMMA-GLUTAMYLTRANSFERASE INCREASED [None]
  - HEMIPARESIS [None]
  - HEPATIC FUNCTION ABNORMAL [None]
  - VISUAL FIELD DEFECT [None]
